FAERS Safety Report 21493654 (Version 1)
Quarter: 2022Q4

REPORT INFORMATION
  Report Type: Spontaneous
  Country: US (occurrence: None)
  Receive Date: 20221021
  Receipt Date: 20221021
  Transmission Date: 20230112
  Serious: Yes (Hospitalization)
  Sender: FDA-Public Use
  Company Number: None

PATIENT
  Age: 83 Year
  Sex: Female

DRUGS (1)
  1. JAKAFI [Suspect]
     Active Substance: RUXOLITINIB
     Dosage: 10 MG DAIL ORAL
     Route: 048
     Dates: start: 20190131

REACTIONS (3)
  - Eye operation [None]
  - Sinusitis [None]
  - Viral infection [None]

NARRATIVE: CASE EVENT DATE: 20221005
